FAERS Safety Report 21134810 (Version 2)
Quarter: 2022Q3

REPORT INFORMATION
  Report Type: Report from Study
  Country: US (occurrence: US)
  Receive Date: 20220727
  Receipt Date: 20220912
  Transmission Date: 20221026
  Serious: Yes (Other)
  Sender: FDA-Public Use
  Company Number: US-ABBVIE-22K-163-4479063-00

PATIENT
  Sex: Female

DRUGS (1)
  1. RINVOQ [Suspect]
     Active Substance: UPADACITINIB
     Indication: Rheumatoid arthritis
     Route: 048
     Dates: start: 20220515

REACTIONS (9)
  - Intracranial aneurysm [Unknown]
  - Intervertebral disc protrusion [Unknown]
  - Cerebrovascular accident [Unknown]
  - Basal cell carcinoma [Unknown]
  - Pain [Unknown]
  - Joint stiffness [Unknown]
  - Anxiety [Unknown]
  - Exostosis [Unknown]
  - Headache [Unknown]

NARRATIVE: CASE EVENT DATE: 20220101
